FAERS Safety Report 8432962-X (Version None)
Quarter: 2012Q2

REPORT INFORMATION
  Report Type: 
  Country: None (occurrence: None)
  Receive Date: 20120613
  Receipt Date: 20120604
  Transmission Date: 20120825
  Serious: Yes (Other)
  Sender: FDA-Public Use
  Company Number: US-ROCHE-1070400

PATIENT
  Sex: Female
  Weight: 50.394 kg

DRUGS (4)
  1. SOLU-MEDROL [Concomitant]
     Route: 042
  2. BENADRYL [Concomitant]
     Route: 042
     Dates: start: 20120413
  3. RITUXAN [Suspect]
     Indication: SYSTEMIC LUPUS ERYTHEMATOSUS
     Route: 042
     Dates: start: 20120413, end: 20120413
  4. SOLU-MEDROL [Concomitant]
     Route: 042

REACTIONS (5)
  - HYPOAESTHESIA [None]
  - PARAESTHESIA [None]
  - URTICARIA [None]
  - PHARYNGEAL DISORDER [None]
  - PRURITUS [None]
